FAERS Safety Report 7125820-4 (Version None)
Quarter: 2010Q4

REPORT INFORMATION
  Report Type: 
  Country: None (occurrence: None)
  Receive Date: 20101129
  Receipt Date: 20101122
  Transmission Date: 20110411
  Serious: Yes (Life-Threatening, Hospitalization, Other)
  Sender: FDA-Public Use
  Company Number: D0069499A

PATIENT
  Age: 63 Year
  Sex: Male
  Weight: 69 kg

DRUGS (5)
  1. ZOFRAN [Suspect]
     Indication: PROPHYLAXIS OF NAUSEA AND VOMITING
     Route: 042
     Dates: start: 20100215, end: 20100601
  2. OXALIPLATIN [Suspect]
     Indication: COLON CANCER
     Dosage: 144MG PER DAY
     Route: 042
     Dates: start: 20100215, end: 20100531
  3. FLUOROURACIL [Suspect]
     Indication: COLON CANCER
     Route: 042
     Dates: start: 20100215, end: 20100601
  4. FORTECORTIN [Concomitant]
     Route: 065
  5. MULTIPLE MEDICATION [Concomitant]
     Route: 065

REACTIONS (6)
  - ANURIA [None]
  - ESCHERICHIA SEPSIS [None]
  - PYREXIA [None]
  - RENAL FAILURE ACUTE [None]
  - RESPIRATORY FAILURE [None]
  - SEPTIC SHOCK [None]
